FAERS Safety Report 23708960 (Version 1)
Quarter: 2024Q2

REPORT INFORMATION
  Report Type: Spontaneous
  Country: US (occurrence: None)
  Receive Date: 20240404
  Receipt Date: 20240404
  Transmission Date: 20240716
  Serious: No
  Sender: FDA-Public Use
  Company Number: None

PATIENT

DRUGS (2)
  1. RETACRIT [Suspect]
     Active Substance: EPOETIN ALFA-EPBX
     Dosage: DOSAGE FORM : INJECTABLE
  2. ADRENALIN [Suspect]
     Active Substance: EPINEPHRINE
     Dosage: DOSAGE FORM : INJECTABLE

REACTIONS (3)
  - Product label confusion [None]
  - Product administration interrupted [None]
  - Product storage error [None]
